FAERS Safety Report 6634962-9 (Version None)
Quarter: 2010Q1

REPORT INFORMATION
  Report Type: 
  Country: None (occurrence: None)
  Receive Date: 20100315
  Receipt Date: 20100303
  Transmission Date: 20100710
  Serious: Yes (Life-Threatening, Hospitalization)
  Sender: FDA-Public Use
  Company Number: FR-WYE-H13902010

PATIENT
  Age: 65 Year
  Sex: Female

DRUGS (5)
  1. CORDARONE [Suspect]
     Indication: CARDIAC DISORDER
     Dosage: 200 MG TABLET (DOSE AND REGIMEN UNSPECIFIED)
     Route: 048
     Dates: start: 20080601
  2. OROKEN [Concomitant]
     Dosage: UNKNOWN
     Route: 065
     Dates: start: 20091215
  3. PREVISCAN [Concomitant]
  4. TAVANIC [Interacting]
     Indication: INFECTION PROPHYLAXIS
     Dosage: 500 MG TABLET (DOSE AND REGIMEN UNSPECIFIED)
     Route: 048
     Dates: start: 20091215
  5. CARDENSIEL [Interacting]
     Indication: CARDIAC DISORDER

REACTIONS (3)
  - CARDIO-RESPIRATORY ARREST [None]
  - DRUG INTERACTION [None]
  - TORSADE DE POINTES [None]
